FAERS Safety Report 4374980-7 (Version None)
Quarter: 2004Q2

REPORT INFORMATION
  Report Type: 
  Country: None (occurrence: None)
  Receive Date: 20040608
  Receipt Date: 20040405
  Transmission Date: 20050107
  Serious: Yes (Disabling)
  Sender: FDA-Public Use
  Company Number: WAES 0404USA00452

PATIENT
  Age: 75 Year
  Sex: Female

DRUGS (2)
  1. COSOPT [Suspect]
     Indication: GLAUCOMA
     Dosage: 1 DROPS/BID/OPHT
     Route: 047
     Dates: start: 20030401
  2. CELEBREX [Concomitant]

REACTIONS (7)
  - ASTHENIA [None]
  - DEPRESSION [None]
  - DIZZINESS [None]
  - EYE IRRITATION [None]
  - FATIGUE [None]
  - SOMNOLENCE [None]
  - VERTIGO [None]
